FAERS Safety Report 5321524-9 (Version None)
Quarter: 2007Q2

REPORT INFORMATION
  Report Type: 
  Country: None (occurrence: None)
  Receive Date: 20070510
  Receipt Date: 20070503
  Transmission Date: 20071010
  Serious: Yes (Hospitalization)
  Sender: FDA-Public Use
  Company Number: IT-ASTRAZENECA-2007AC00800

PATIENT
  Age: 64 Year
  Sex: Male

DRUGS (7)
  1. ROSUVASTATIN [Suspect]
     Route: 048
  2. ATORVASTATIN CALCIUM [Suspect]
     Dosage: STOPPED TREATMENT DUE TO ITCHING SKIN RASH
  3. CLOPIDOGREL [Concomitant]
  4. ASPIRIN [Concomitant]
  5. METOPROLOL SUCCINATE [Concomitant]
  6. RAMIPRIL [Concomitant]
  7. ATORVASTATIN CALCIUM [Concomitant]

REACTIONS (1)
  - HEPATOTOXICITY [None]
